FAERS Safety Report 5880360-5 (Version None)
Quarter: 2008Q3

REPORT INFORMATION
  Report Type: 
  Country: None (occurrence: None)
  Receive Date: 20080912
  Receipt Date: 20080721
  Transmission Date: 20090109
  Serious: No
  Sender: FDA-Public Use
  Company Number: US-ABBOTT-04P-163-0278547-00

PATIENT
  Sex: Female
  Weight: 59.928 kg

DRUGS (12)
  1. HUMIRA [Suspect]
     Indication: RHEUMATOID ARTHRITIS
     Route: 058
  2. RANITIDINE HYDROCHLORIDE [Concomitant]
     Indication: DRUG USE FOR UNKNOWN INDICATION
     Route: 048
  3. LORATADINE [Concomitant]
     Indication: DRUG USE FOR UNKNOWN INDICATION
     Route: 048
  4. ESOMEPRAZOLE MAGNESIUM [Concomitant]
     Indication: DRUG USE FOR UNKNOWN INDICATION
     Route: 048
  5. IBUPROFEN [Concomitant]
     Indication: DRUG USE FOR UNKNOWN INDICATION
     Route: 048
  6. METHOTREXATE [Concomitant]
     Indication: RHEUMATOID ARTHRITIS
     Dosage: 10 MG (4 TABLETS) A WEEK
     Route: 048
  7. METHOTREXATE [Concomitant]
     Dosage: 7.5 MG/WEEK (3 TABLETS/WEEK)
     Route: 048
  8. ATORVASTATIN CALCIUM [Concomitant]
     Indication: DRUG USE FOR UNKNOWN INDICATION
     Dosage: DAILY
     Route: 048
  9. FOLIC ACID [Concomitant]
     Indication: RHEUMATOID ARTHRITIS
     Dosage: DAILY
     Route: 048
  10. PHYTOMENADIONE [Concomitant]
     Indication: VITAMIN SUPPLEMENTATION
     Route: 048
  11. CALCIUM-SANDOZ [Concomitant]
     Indication: MINERAL SUPPLEMENTATION
     Route: 048
  12. ERGOCALCIFEROL [Concomitant]
     Indication: VITAMIN SUPPLEMENTATION
     Route: 048

REACTIONS (7)
  - CHEST PAIN [None]
  - DYSGEUSIA [None]
  - INJECTION SITE ERYTHEMA [None]
  - INJECTION SITE PAIN [None]
  - INJECTION SITE PAPULE [None]
  - INJECTION SITE REACTION [None]
  - INJECTION SITE SWELLING [None]
